FAERS Safety Report 7318750-6 (Version None)
Quarter: 2011Q1

REPORT INFORMATION
  Report Type: 
  Country: None (occurrence: None)
  Receive Date: 20110228
  Receipt Date: 20100310
  Transmission Date: 20110831
  Serious: No
  Sender: FDA-Public Use
  Company Number: A0849503A

PATIENT
  Sex: Female

DRUGS (1)
  1. IMITREX [Suspect]
     Indication: MIGRAINE
     Route: 058

REACTIONS (5)
  - INJECTION SITE ERYTHEMA [None]
  - INJECTION SITE REACTION [None]
  - CHOKING SENSATION [None]
  - INJECTION SITE SWELLING [None]
  - RESPIRATION ABNORMAL [None]
